FAERS Safety Report 15330556 (Version 1)
Quarter: 2018Q3

REPORT INFORMATION
  Report Type: Report from Study
  Country: None (occurrence: US)
  Receive Date: 20180829
  Receipt Date: 20180829
  Transmission Date: 20181010
  Serious: Yes (Hospitalization, Other)
  Sender: FDA-Public Use
  Company Number: US-ABBVIE-18K-163-2425670-00

PATIENT
  Age: 31 Year
  Sex: Female
  Weight: 53.12 kg

DRUGS (3)
  1. VITAMIN C [Concomitant]
     Active Substance: ASCORBIC ACID
     Indication: VITAMIN SUPPLEMENTATION
  2. HUMIRA [Suspect]
     Active Substance: ADALIMUMAB
     Indication: COLITIS ULCERATIVE
     Route: 058
     Dates: start: 201608, end: 201806
  3. VANCOMYCIN [Suspect]
     Active Substance: VANCOMYCIN
     Indication: PRODUCT USED FOR UNKNOWN INDICATION
     Route: 042
     Dates: start: 2018, end: 2018

REACTIONS (12)
  - Omental infarction [Unknown]
  - Purulent discharge [Not Recovered/Not Resolved]
  - Skin infection [Not Recovered/Not Resolved]
  - Abscess intestinal [Recovered/Resolved]
  - Rectal haemorrhage [Recovered/Resolved]
  - Postoperative wound complication [Not Recovered/Not Resolved]
  - Gastrointestinal stoma complication [Recovered/Resolved]
  - Drug hypersensitivity [Unknown]
  - Colitis ulcerative [Recovering/Resolving]
  - Nausea [Recovered/Resolved]
  - Proctitis [Recovered/Resolved]
  - Proctalgia [Recovered/Resolved]

NARRATIVE: CASE EVENT DATE: 201711
